FAERS Safety Report 4911192-X (Version None)
Quarter: 2006Q1

REPORT INFORMATION
  Report Type: 
  Country: None (occurrence: None)
  Receive Date: 20060209
  Receipt Date: 20060126
  Transmission Date: 20060701
  Serious: Yes (Hospitalization)
  Sender: FDA-Public Use
  Company Number: DSK-2005-13649

PATIENT
  Age: 47 Year
  Sex: Female

DRUGS (10)
  1. RHEUMATREX [Concomitant]
     Indication: SJOGREN'S SYNDROME
     Route: 048
     Dates: start: 20051201, end: 20051207
  2. NABOAL SR (DICLOFENAC SODIUM) [Concomitant]
  3. ACTINON (NIZATIDINE) [Concomitant]
  4. SELBEX (TEPRENONE) [Concomitant]
  5. RISEDRONATE SODIUM [Concomitant]
  6. PREDNISOLONE [Concomitant]
  7. METHYCOBAL (MECOBALAMINE) [Concomitant]
  8. NEUTROPIN (ORGAN LYSATE, STANDARDIZED) [Concomitant]
  9. EVOXAC [Suspect]
     Indication: SJOGREN'S SYNDROME
     Dosage: ORAL
     Route: 048
     Dates: start: 20051201, end: 20051207
  10. ENBREL [Concomitant]

REACTIONS (8)
  - ANTIPHOSPHOLIPID SYNDROME [None]
  - BRAIN SCAN ABNORMAL [None]
  - CEREBRAL INFARCTION [None]
  - DELIRIUM [None]
  - LUPUS ENCEPHALITIS [None]
  - PYREXIA [None]
  - RESTLESSNESS [None]
  - TRANSIENT ISCHAEMIC ATTACK [None]
